FAERS Safety Report 6176147-9 (Version None)
Quarter: 2009Q2

REPORT INFORMATION
  Report Type: 
  Country: None (occurrence: None)
  Receive Date: 20090501
  Receipt Date: 20090423
  Transmission Date: 20091009
  Serious: Yes (Other)
  Sender: FDA-Public Use
  Company Number: AU-ELI_LILLY_AND_COMPANY-AU200904005503

PATIENT
  Age: 76 Year
  Sex: Male

DRUGS (2)
  1. ZYPREXA [Suspect]
     Dosage: 5 MG, EACH MORNING
     Route: 065
     Dates: start: 20090202
  2. ZYPREXA [Suspect]
     Dosage: 5 MG, EACH EVENING
     Route: 065
     Dates: start: 20090202

REACTIONS (4)
  - CEREBRAL HAEMATOMA [None]
  - DRUG DOSE OMISSION [None]
  - DYSARTHRIA [None]
  - FALL [None]
